FAERS Safety Report 5164278-1 (Version None)
Quarter: 2006Q4

REPORT INFORMATION
  Report Type: 
  Country: None (occurrence: None)
  Receive Date: 20061128
  Receipt Date: 20061128
  Transmission Date: 20070319
  Serious: Yes (Hospitalization)
  Sender: FDA-Public Use
  Company Number: None

PATIENT
  Age: 64 Year
  Sex: Female
  Weight: 133 kg

DRUGS (8)
  1. INNOHEP [Suspect]
     Indication: GLIOBLASTOMA MULTIFORME
     Dosage: 4500 IU SC QD
     Route: 058
     Dates: start: 20060626
  2. KEPPRA [Concomitant]
  3. ZANTAC [Concomitant]
  4. DECADRON [Concomitant]
  5. HYDROCHLOROTHIAZIDE [Concomitant]
  6. SIMVASTATIN [Concomitant]
  7. COLACE [Concomitant]
  8. SODIUM CHLORIDE [Concomitant]

REACTIONS (1)
  - CARDIAC FAILURE [None]
